FAERS Safety Report 21543878 (Version 2)
Quarter: 2022Q4

REPORT INFORMATION
  Report Type: Spontaneous
  Country: US (occurrence: US)
  Receive Date: 20221102
  Receipt Date: 20221201
  Transmission Date: 20230113
  Serious: No
  Sender: FDA-Public Use
  Company Number: US-ELI_LILLY_AND_COMPANY-US202211000328

PATIENT
  Sex: Female

DRUGS (3)
  1. ADCIRCA [Suspect]
     Active Substance: TADALAFIL
     Indication: Product used for unknown indication
     Dosage: UNK UNK, UNKNOWN
     Route: 065
  2. TYVASO [Suspect]
     Active Substance: TREPROSTINIL
     Indication: Pulmonary arterial hypertension
     Dosage: 48 UG, QID
     Route: 055
     Dates: start: 202209
  3. TYVASO [Suspect]
     Active Substance: TREPROSTINIL
     Dosage: 16 UG, QID
     Route: 055
     Dates: start: 202210

REACTIONS (5)
  - Weight increased [Unknown]
  - Ascites [Not Recovered/Not Resolved]
  - Cough [Not Recovered/Not Resolved]
  - Chest discomfort [Unknown]
  - Oedema peripheral [Unknown]
